FAERS Safety Report 8773112 (Version 1)
Quarter: 2012Q4

REPORT INFORMATION
  Report Type: 
  Country: AU (occurrence: AU)
  Receive Date: 20120907
  Receipt Date: 20120907
  Transmission Date: 20130627
  Serious: Yes (Other)
  Sender: FDA-Public Use
  Company Number: PHHY2012AU074948

PATIENT
  Age: 58 Year
  Sex: Female

DRUGS (3)
  1. INDAPAMIDE [Suspect]
     Indication: HYPERTENSION
     Dosage: 2.5 mg, daily
     Dates: start: 20100414
  2. LIPITOR [Interacting]
     Indication: HYPERTENSION
     Dosage: 10 mg, daily
     Dates: start: 20100414
  3. CRESTOR [Interacting]
     Indication: HYPERTENSION
     Dosage: 5 mg, daily

REACTIONS (5)
  - Aphasia [Recovered/Resolved]
  - Tension [Recovered/Resolved]
  - Confusional state [Recovered/Resolved]
  - Tearfulness [Recovered/Resolved]
  - Drug interaction [Recovered/Resolved]
